FAERS Safety Report 8317232-2 (Version None)
Quarter: 2012Q2

REPORT INFORMATION
  Report Type: 
  Country: None (occurrence: None)
  Receive Date: 20120427
  Receipt Date: 20120420
  Transmission Date: 20120825
  Serious: Yes (Other)
  Sender: FDA-Public Use
  Company Number: US-ASTRAZENECA-2011SE32259

PATIENT
  Age: 54 Year
  Sex: Female

DRUGS (4)
  1. ZEGERID [Concomitant]
  2. NEXIUM [Suspect]
     Indication: GASTROOESOPHAGEAL REFLUX DISEASE
     Route: 048
     Dates: start: 20010101
  3. NEXIUM [Suspect]
     Route: 048
     Dates: start: 20090211
  4. OXYPROZINE [Concomitant]

REACTIONS (6)
  - VISION BLURRED [None]
  - HERNIA [None]
  - BLINDNESS [None]
  - CATARACT [None]
  - BONE DISORDER [None]
  - FOOT FRACTURE [None]
